FAERS Safety Report 10155590 (Version 3)
Quarter: 2014Q2

REPORT INFORMATION
  Report Type: Spontaneous
  Country: JP (occurrence: JP)
  Receive Date: 20140506
  Receipt Date: 20140612
  Transmission Date: 20141212
  Serious: Yes (Hospitalization)
  Sender: FDA-Public Use
  Company Number: JP-ABBVIE-14P-087-1234436-00

PATIENT
  Age: 53 Year
  Sex: Male

DRUGS (1)
  1. LIPIDIL TABLETS 80 MG [Suspect]
     Indication: HYPERLIPIDAEMIA
     Route: 048
     Dates: start: 20140104, end: 20140418

REACTIONS (1)
  - Liver disorder [Not Recovered/Not Resolved]
